FAERS Safety Report 8310695-8 (Version None)
Quarter: 2012Q2

REPORT INFORMATION
  Report Type: 
  Country: None (occurrence: None)
  Receive Date: 20120425
  Receipt Date: 20120416
  Transmission Date: 20120825
  Serious: No
  Sender: FDA-Public Use
  Company Number: IE-PFIZER INC-2012090286

PATIENT
  Age: 37 Year
  Sex: Male

DRUGS (3)
  1. QUETIAPINE FUMARATE [Suspect]
     Indication: BIPOLAR DISORDER
  2. CARBAMAZEPINE [Concomitant]
     Indication: EPILEPSY
     Dosage: 600 MG, 2X/DAY
  3. OLANZAPINE [Suspect]
     Indication: BIPOLAR DISORDER

REACTIONS (1)
  - DRUG INEFFECTIVE [None]
